FAERS Safety Report 23458822 (Version 1)
Quarter: 2024Q1

REPORT INFORMATION
  Report Type: Spontaneous
  Country: FR (occurrence: FR)
  Receive Date: 20240131
  Receipt Date: 20240131
  Transmission Date: 20240410
  Serious: Yes (Death, Other)
  Sender: FDA-Public Use
  Company Number: FR-VER-202400001

PATIENT
  Age: 93 Year
  Sex: Male

DRUGS (3)
  1. TRIPTORELIN PAMOATE [Suspect]
     Active Substance: TRIPTORELIN PAMOATE
     Indication: Product used for unknown indication
     Dosage: ONE INJECTION EVERY 6 MONTHS (22.5 MG,6 M)
     Route: 030
  2. TRIPTORELIN PAMOATE [Suspect]
     Active Substance: TRIPTORELIN PAMOATE
     Indication: Product used for unknown indication
     Dosage: START DATE : 06-JAN-2024, ONE INJECTION EVERY 6 MONTHS (22.5 MG,6 M)
     Route: 030
  3. TRIPTORELIN PAMOATE [Suspect]
     Active Substance: TRIPTORELIN PAMOATE
     Indication: Product used for unknown indication
     Dosage: START DATE : 2002 ONE INJECTION EVERY 6 MONTHS (22.5 MG,6 M)
     Route: 030

REACTIONS (23)
  - Agitation [Unknown]
  - Back pain [Unknown]
  - Vision blurred [Unknown]
  - Dyspnoea [Unknown]
  - Confusional state [Unknown]
  - Death [Fatal]
  - General physical health deterioration [Unknown]
  - Dizziness [Recovered/Resolved]
  - Dizziness [Unknown]
  - Dry mouth [Recovered/Resolved]
  - Dry mouth [Unknown]
  - Fatigue [Recovered/Resolved]
  - Fatigue [Unknown]
  - Insomnia [Unknown]
  - Decreased appetite [Unknown]
  - Muscular weakness [Unknown]
  - Nausea [Unknown]
  - Hyperhidrosis [Recovered/Resolved]
  - Hyperhidrosis [Unknown]
  - Lip swelling [Recovered/Resolved]
  - Lip swelling [Unknown]
  - Tremor [Recovered/Resolved]
  - Tremor [Unknown]

NARRATIVE: CASE EVENT DATE: 20230101
